FAERS Safety Report 6783010-9 (Version None)
Quarter: 2010Q2

REPORT INFORMATION
  Report Type: 
  Country: None (occurrence: None)
  Receive Date: 20100622
  Receipt Date: 20100611
  Transmission Date: 20101027
  Serious: Yes (Other)
  Sender: FDA-Public Use
  Company Number: US-JNJFOC-20100504253

PATIENT
  Age: 18 Year
  Sex: Female
  Weight: 48.54 kg

DRUGS (8)
  1. CHILDREN'S MOTRIN [Suspect]
     Indication: HEADACHE
     Dosage: 4-5 DOSES PER DAY
  2. CHILDREN'S MOTRIN [Suspect]
     Indication: DYSMENORRHOEA
     Dosage: 4-5 DOSES PER DAY
  3. MOTRIN [Suspect]
     Indication: HEADACHE
  4. MOTRIN [Suspect]
     Indication: DYSMENORRHOEA
  5. PPI [Concomitant]
     Indication: GASTROOESOPHAGEAL REFLUX DISEASE
  6. FLAGYL [Concomitant]
     Indication: DIARRHOEA
  7. CIPRO [Concomitant]
     Indication: DIARRHOEA
  8. CARAFATE [Concomitant]
     Indication: GASTROOESOPHAGEAL REFLUX DISEASE
     Dosage: 2-4 DOSES DAILY

REACTIONS (9)
  - ABDOMINAL PAIN [None]
  - ABNORMAL FAECES [None]
  - CHEST PAIN [None]
  - CHILLS [None]
  - DIZZINESS [None]
  - HEADACHE [None]
  - PRODUCT QUALITY ISSUE [None]
  - PYREXIA [None]
  - THROAT TIGHTNESS [None]
